FAERS Safety Report 23065477 (Version 1)
Quarter: 2023Q4

REPORT INFORMATION
  Report Type: Spontaneous
  Country: US (occurrence: US)
  Receive Date: 20231013
  Receipt Date: 20231013
  Transmission Date: 20240110
  Serious: Yes (Other)
  Sender: FDA-Public Use
  Company Number: US-009507513-2310USA003279

PATIENT
  Age: 54 Year
  Sex: Female

DRUGS (3)
  1. KEYTRUDA [Suspect]
     Active Substance: PEMBROLIZUMAB
     Dosage: UNK
     Dates: start: 202209
  2. DENOSUMAB [Concomitant]
     Active Substance: DENOSUMAB
     Indication: Invasive ductal breast carcinoma
     Dosage: UNK
     Dates: start: 2020
  3. DENOSUMAB [Concomitant]
     Active Substance: DENOSUMAB
     Indication: Inflammatory carcinoma of the breast

REACTIONS (1)
  - Chylothorax [Unknown]

NARRATIVE: CASE EVENT DATE: 20220101
